FAERS Safety Report 7672935-8 (Version None)
Quarter: 2011Q3

REPORT INFORMATION
  Report Type: 
  Country: None (occurrence: None)
  Receive Date: 20110809
  Receipt Date: 20110225
  Transmission Date: 20111222
  Serious: Yes (Hospitalization, Disabling, Other)
  Sender: FDA-Public Use
  Company Number: CA-BAYER-2011-004971

PATIENT
  Age: 30 Year
  Sex: Female

DRUGS (3)
  1. FLUCONAZOLE [Suspect]
     Indication: FUNGAL INFECTION
     Dosage: UNK
     Route: 048
  2. CLOTRIMAZOLE [Suspect]
     Dosage: 1 DF, ONCE
     Route: 067
     Dates: start: 20040101, end: 20040101
  3. CIPROFLOXACIN HCL [Concomitant]

REACTIONS (20)
  - URINE OUTPUT DECREASED [None]
  - TONGUE ULCERATION [None]
  - COORDINATION ABNORMAL [None]
  - ABDOMINAL DISCOMFORT [None]
  - CHROMATURIA [None]
  - PHARYNGITIS STREPTOCOCCAL [None]
  - RENAL PAIN [None]
  - GASTROINTESTINAL PAIN [None]
  - PROCTALGIA [None]
  - VULVOVAGINAL PAIN [None]
  - PAIN [None]
  - PSYCHIATRIC SYMPTOM [None]
  - VISION BLURRED [None]
  - VULVOVAGINAL SWELLING [None]
  - HEPATIC PAIN [None]
  - DISORIENTATION [None]
  - OROPHARYNGEAL PAIN [None]
  - HEADACHE [None]
  - EAR INFECTION [None]
  - DRUG HYPERSENSITIVITY [None]
